FAERS Safety Report 9852772 (Version 2)
Quarter: 2014Q1

REPORT INFORMATION
  Report Type: Spontaneous
  Country: US (occurrence: US)
  Receive Date: 20140129
  Receipt Date: 20140129
  Transmission Date: 20141002
  Serious: Yes (Hospitalization, Other)
  Sender: FDA-Public Use
  Company Number: PHHY2013US154573

PATIENT
  Age: 57 Year
  Sex: Female

DRUGS (21)
  1. GILENYA [Suspect]
     Dosage: 1 DF, DAILY
     Route: 048
  2. BACLOFEN INTRATHECAL [Suspect]
     Indication: MUSCLE SPASTICITY
     Dosage: 8059.6 UG, DAILY
     Route: 037
  3. BACLOFEN INTRATHECAL [Suspect]
     Dosage: 859.3 UNK, UNK
     Route: 037
  4. BACLOFEN [Suspect]
     Dosage: 10 MG, BID
     Route: 048
  5. BACLOFEN [Suspect]
     Dosage: 20 MG, QID
     Route: 048
  6. SYMMETREL [Suspect]
     Dosage: 1 DF, BID
     Route: 048
  7. AMANTADINE [Suspect]
     Dosage: 1 DF, BID
     Route: 048
  8. TIZANIDINE [Suspect]
     Dosage: 2 DF, BID (2 AT BEDTIME)
     Route: 048
  9. ZOLPIDEM TARTRATE [Suspect]
     Indication: SLEEP DISORDER
     Dosage: 10 MG, AT 10 PM
     Route: 048
  10. DIAZEPAM [Suspect]
     Dosage: 1 DF, BID (2 TABLETS AT BEDTIME)
     Route: 048
  11. PROMETHAZINE HCL [Suspect]
     Indication: NAUSEA
     Dosage: 1 DF, (EVERY 4-6 HRS AS NEEDED)
  12. HYDROMORPHONE HCL [Suspect]
     Dosage: 2 DF, BID (MORNING AND EVENING WITH AN EXTRA TABLET AS NEEDED)
     Route: 048
  13. OXYBUTYNIN CHLORIDE [Suspect]
     Dosage: 1 DF, BID
  14. PROZAC [Suspect]
     Dosage: 1 DF, DAILY
     Route: 048
  15. VALIUM [Suspect]
     Dosage: 1 DF, TID
     Route: 048
  16. NORVASC [Suspect]
     Dosage: 1 DF, DAILY
     Route: 048
  17. FOSAMAX [Suspect]
     Dosage: 1 DF, WEEKLY
     Route: 048
  18. LYRICA [Suspect]
     Dosage: 1 DF, AT BEDTIME
     Route: 048
  19. FENTANYL [Suspect]
     Dosage: 1 DF,/ HR PATCH 72 HOURS
     Route: 062
  20. DILAUDID [Suspect]
     Dosage: 2 DF, BID (EXTRA AS NEEDED)
     Route: 048
  21. STOOL SOFTENER [Suspect]
     Dosage: 2 DF, DAILY
     Route: 048

REACTIONS (13)
  - Loss of control of legs [Unknown]
  - Mental status changes [Unknown]
  - Restlessness [Unknown]
  - Rhonchi [Unknown]
  - Rales [Unknown]
  - Hypoaesthesia [Unknown]
  - Condition aggravated [Unknown]
  - Adverse drug reaction [Unknown]
  - Pain [Unknown]
  - Muscle spasms [Unknown]
  - Upper respiratory tract infection [Unknown]
  - Cough [Unknown]
  - Drug withdrawal syndrome [Unknown]
